FAERS Safety Report 4479131-6 (Version None)
Quarter: 2004Q3

REPORT INFORMATION
  Report Type: 
  Country: None (occurrence: None)
  Receive Date: 20040923
  Receipt Date: 20040719
  Transmission Date: 20050211
  Serious: Yes (Hospitalization, Other)
  Sender: FDA-Public Use
  Company Number: 206401

PATIENT
  Age: 66 Year
  Sex: Male
  Weight: 86 kg

DRUGS (15)
  1. AVASTIN [Suspect]
     Indication: COLON CANCER METASTATIC
     Dosage: 430 MG Q2W INTRAVENOUS
     Route: 042
     Dates: start: 20040419, end: 20040503
  2. FLUOROURACIL [Concomitant]
  3. CAMPTOSAR [Concomitant]
  4. ASPIRIN [Concomitant]
  5. RANITIDINE [Concomitant]
  6. PRILOSEC [Concomitant]
  7. METOPROLOL TARTRATE [Concomitant]
  8. LIPITOR [Concomitant]
  9. LISINOPRIL [Concomitant]
  10. IRON (IRON NOS) [Concomitant]
  11. MULTI-VITAMINS [Concomitant]
  12. COMPAZINE [Concomitant]
  13. SUPPOSITORY [Concomitant]
  14. ZOFRAN [Concomitant]
  15. NITROGLYCERIN [Concomitant]

REACTIONS (1)
  - GASTROINTESTINAL PERFORATION [None]
